FAERS Safety Report 9216141 (Version 1)
Quarter: 2013Q2

REPORT INFORMATION
  Report Type: Spontaneous
  Country: BR (occurrence: None)
  Receive Date: 20130403
  Receipt Date: 20130403
  Transmission Date: 20140414
  Serious: Yes (Hospitalization, Other)
  Sender: FDA-Public Use
  Company Number: VAL_01455_2013

PATIENT
  Sex: Female
  Weight: 79 kg

DRUGS (3)
  1. PARLODEL [Suspect]
     Indication: MENSTRUAL DISORDER
     Route: 048
     Dates: start: 1987
  2. PARLODEL [Suspect]
     Indication: OFF LABEL USE
     Route: 048
     Dates: start: 1987
  3. TEGRETOL [Suspect]
     Indication: EPILEPSY
     Route: 048
     Dates: start: 1982

REACTIONS (6)
  - Product quality issue [None]
  - Migraine [None]
  - Blood prolactin increased [None]
  - Brain mass [None]
  - Amenorrhoea [None]
  - Abnormal behaviour [None]
